FAERS Safety Report 18197262 (Version 3)
Quarter: 2022Q1

REPORT INFORMATION
  Report Type: Spontaneous
  Country: FR (occurrence: FR)
  Receive Date: 20200826
  Receipt Date: 20220318
  Transmission Date: 20220423
  Serious: Yes (Hospitalization)
  Sender: FDA-Public Use
  Company Number: FR-TEVA-2020-FR-1817966

PATIENT
  Age: 52 Year
  Sex: Male

DRUGS (8)
  1. CELECOXIB [Suspect]
     Active Substance: CELECOXIB
     Indication: Rheumatic disorder
     Dosage: A SHORT COURSE FOR OVER A YEAR
     Route: 065
  2. METHOTREXATE [Suspect]
     Active Substance: METHOTREXATE
     Indication: Rheumatic disorder
     Dosage: 20 MG/WEEK (FOR 5 DAYS)
     Route: 065
  3. AMOXICILLIN\CLAVULANIC ACID [Suspect]
     Active Substance: AMOXICILLIN\CLAVULANIC ACID
     Indication: Antibiotic therapy
     Route: 065
  4. INFLIXIMAB [Suspect]
     Active Substance: INFLIXIMAB
     Indication: Rheumatic disorder
     Route: 065
  5. EBASTINE [Suspect]
     Active Substance: EBASTINE
     Indication: Antiallergic therapy
     Route: 065
  6. PREDNISOLONE [Suspect]
     Active Substance: PREDNISOLONE
     Indication: Steroid therapy
     Route: 050
  7. ACITRETIN [Suspect]
     Active Substance: ACITRETIN
     Indication: Drug reaction with eosinophilia and systemic symptoms
     Route: 065
  8. ACITRETIN [Suspect]
     Active Substance: ACITRETIN
     Indication: Drug reaction with eosinophilia and systemic symptoms
     Dosage: INCREASED ON THE 4TH DAY
     Route: 065

REACTIONS (7)
  - Drug reaction with eosinophilia and systemic symptoms [Recovered/Resolved]
  - Epstein-Barr virus infection reactivation [Recovered/Resolved]
  - Hepatic cytolysis [Recovered/Resolved]
  - Interstitial lung disease [Recovered/Resolved]
  - Cardiac disorder [Recovered/Resolved]
  - Ventricular dysfunction [Recovered/Resolved]
  - Drug ineffective [Unknown]
